FAERS Safety Report 14025217 (Version 1)
Quarter: 2017Q3

REPORT INFORMATION
  Report Type: Spontaneous
  Country: US (occurrence: US)
  Receive Date: 20170929
  Receipt Date: 20170929
  Transmission Date: 20171128
  Serious: No
  Sender: FDA-Public Use
  Company Number: US-DRREDDYS-USA/USA/17/0091454

PATIENT
  Age: 10 Year
  Sex: Male

DRUGS (1)
  1. FLUOXETINE [Suspect]
     Active Substance: FLUOXETINE HYDROCHLORIDE
     Indication: GENERALISED ANXIETY DISORDER
     Route: 065
     Dates: start: 20170301

REACTIONS (5)
  - Irritability [Recovering/Resolving]
  - Anxiety [Recovering/Resolving]
  - Product quality issue [Unknown]
  - Drug ineffective [Unknown]
  - Fear [Recovering/Resolving]
